FAERS Safety Report 4500954-9 (Version None)
Quarter: 2004Q4

REPORT INFORMATION
  Report Type: 
  Country: None (occurrence: None)
  Receive Date: 20041115
  Receipt Date: 20041105
  Transmission Date: 20050328
  Serious: Yes (Hospitalization)
  Sender: FDA-Public Use
  Company Number: US-ROCHE-385573

PATIENT

DRUGS (3)
  1. MYCOPHENOLATE MOFETIL [Suspect]
     Route: 065
  2. THYMOGLOBULIN [Suspect]
     Route: 065
  3. PREDNISONE [Suspect]
     Route: 065

REACTIONS (5)
  - ABDOMINAL HERNIA [None]
  - ABDOMINAL PAIN [None]
  - ABDOMINAL STRANGULATED HERNIA [None]
  - INCISIONAL HERNIA [None]
  - SMALL INTESTINAL OBSTRUCTION [None]
